FAERS Safety Report 18480550 (Version 1)
Quarter: 2020Q4

REPORT INFORMATION
  Report Type: Spontaneous
  Country: US (occurrence: US)
  Receive Date: 20201109
  Receipt Date: 20201109
  Transmission Date: 20210114
  Serious: No
  Sender: FDA-Public Use
  Company Number: None

PATIENT
  Age: 41 Year
  Sex: Female

DRUGS (1)
  1. TYKERB [Suspect]
     Active Substance: LAPATINIB DITOSYLATE
     Route: 048
     Dates: start: 201905

REACTIONS (6)
  - Therapy interrupted [None]
  - Headache [None]
  - Fatigue [None]
  - Insurance issue [None]
  - Pain in extremity [None]
  - Cardiac disorder [None]

NARRATIVE: CASE EVENT DATE: 20201106
